FAERS Safety Report 9264891 (Version 2)
Quarter: 2013Q2

REPORT INFORMATION
  Report Type: Report from Study
  Country: BR (occurrence: BR)
  Receive Date: 20130501
  Receipt Date: 20130607
  Transmission Date: 20140414
  Serious: Yes (Other)
  Sender: FDA-Public Use
  Company Number: PHHY2013BR042724

PATIENT
  Sex: Female

DRUGS (4)
  1. DIOVAN [Suspect]
     Indication: HYPERTENSION
     Dosage: 80 MG, QD (NIGHT)
     Route: 048
  2. DIOVAN HCT [Suspect]
     Indication: HYPERTENSION
     Dosage: 1 DF (80/12.5MG), QD MORNING
     Route: 048
  3. CAPILAREMA [Concomitant]
     Indication: PERIPHERAL VASCULAR DISORDER
     Dosage: 1 DF, DAILY
     Route: 048
  4. VITAMIN B12 [Concomitant]
     Dosage: 1 DF, QMO
     Route: 030

REACTIONS (11)
  - Arrhythmia [Not Recovered/Not Resolved]
  - Atrial fibrillation [Unknown]
  - Renal failure [Not Recovered/Not Resolved]
  - Spinal cord disorder [Unknown]
  - Blood disorder [Unknown]
  - Heart rate increased [Not Recovered/Not Resolved]
  - Anxiety [Not Recovered/Not Resolved]
  - Weight decreased [Recovered/Resolved]
  - Malaise [Not Recovered/Not Resolved]
  - Labyrinthitis [Not Recovered/Not Resolved]
  - Dizziness [Not Recovered/Not Resolved]
